FAERS Safety Report 21712439 (Version 3)
Quarter: 2023Q2

REPORT INFORMATION
  Report Type: Report from Study
  Country: US (occurrence: None)
  Receive Date: 20221212
  Receipt Date: 20230630
  Transmission Date: 20230721
  Serious: Yes (Hospitalization)
  Sender: FDA-Public Use
  Company Number: US-ROCHE-3235120

PATIENT
  Age: 86 Year
  Sex: Male
  Weight: 67.5 kg

DRUGS (3)
  1. ATEZOLIZUMAB [Suspect]
     Active Substance: ATEZOLIZUMAB
     Indication: Bladder transitional cell carcinoma
     Dosage: OVER 60 MINUTES ON DAY 1.
     Route: 042
     Dates: start: 20220216, end: 20220831
  2. ERIBULIN MESYLATE [Suspect]
     Active Substance: ERIBULIN MESYLATE
     Indication: Bladder transitional cell carcinoma
     Dosage: OVER 2 TO 3 MINUTES ON DAYS 1 AND 8?LAST ADMINISTERED DATE: 19/OCT/2022
     Route: 042
     Dates: start: 20220216
  3. ACYCLOVIR [Concomitant]
     Active Substance: ACYCLOVIR
     Dates: start: 20221004

REACTIONS (2)
  - Acute kidney injury [Unknown]
  - Blood creatinine increased [Recovered/Resolved]

NARRATIVE: CASE EVENT DATE: 20221026
